FAERS Safety Report 7875325-8 (Version None)
Quarter: 2011Q4

REPORT INFORMATION
  Report Type: 
  Country: None (occurrence: None)
  Receive Date: 20111031
  Receipt Date: 20111026
  Transmission Date: 20120403
  Serious: Yes (Hospitalization)
  Sender: FDA-Public Use
  Company Number: US-GLAXOSMITHKLINE-A0951254A

PATIENT
  Age: 25 Year
  Sex: Female
  Weight: 95.5 kg

DRUGS (1)
  1. ALLI [Suspect]
     Indication: WEIGHT DECREASED
     Route: 048
     Dates: start: 20090101

REACTIONS (4)
  - HYPOKALAEMIA [None]
  - LEUKOCYTOSIS [None]
  - ANAEMIA [None]
  - DIVERTICULITIS [None]
